APPROVED DRUG PRODUCT: GRANISETRON HYDROCHLORIDE
Active Ingredient: GRANISETRON HYDROCHLORIDE
Strength: EQ 0.1MG BASE/ML (EQ 0.1MG BASE/ML)
Dosage Form/Route: INJECTABLE;INJECTION
Application: A078534 | Product #001 | TE Code: AP
Applicant: SANDOZ INC
Approved: Apr 30, 2009 | RLD: No | RS: No | Type: RX